FAERS Safety Report 13105605 (Version 1)
Quarter: 2017Q1

REPORT INFORMATION
  Report Type: Spontaneous
  Country: US (occurrence: US)
  Receive Date: 20170111
  Receipt Date: 20170111
  Transmission Date: 20170428
  Serious: Yes (Death, Hospitalization, Other)
  Sender: FDA-Public Use
  Company Number: US-SA-2017SA002009

PATIENT
  Age: 49 Year
  Sex: Female

DRUGS (4)
  1. CALCIUM SALT NOT SPECIFIED [Suspect]
     Active Substance: CALCIUM
     Indication: BRADYCARDIA
     Dosage: INFUSION
     Route: 065
  2. DOXYLAMINE SUCCINATE. [Suspect]
     Active Substance: DOXYLAMINE SUCCINATE
     Indication: COMPLETED SUICIDE
     Dosage: STRENGTH: 25 MG
     Route: 048
  3. GLUCAGON. [Suspect]
     Active Substance: GLUCAGON
     Indication: BRADYCARDIA
     Dosage: INFUSION
     Route: 065
  4. DILTIAZEM. [Suspect]
     Active Substance: DILTIAZEM
     Indication: COMPLETED SUICIDE
     Route: 048

REACTIONS (32)
  - Overdose [Fatal]
  - Blood pressure increased [Fatal]
  - Acute kidney injury [Fatal]
  - Aspartate aminotransferase increased [Fatal]
  - Intestinal infarction [Fatal]
  - Shock [Fatal]
  - Mental impairment [Fatal]
  - Carbon dioxide increased [Fatal]
  - White blood cell count increased [Fatal]
  - Hepatic necrosis [Fatal]
  - Blood urea increased [Fatal]
  - Acute hepatic failure [Fatal]
  - Myocardial necrosis [Fatal]
  - Rhabdomyolysis [Fatal]
  - Blood creatine phosphokinase increased [Fatal]
  - Acidosis [Fatal]
  - Multiple organ dysfunction syndrome [Fatal]
  - Heart rate increased [Fatal]
  - Hypercalcaemia [Unknown]
  - Hypoxia [Fatal]
  - Blood lactic acid increased [Fatal]
  - Colon gangrene [Fatal]
  - Haemoglobin decreased [Fatal]
  - Renal necrosis [Fatal]
  - Calcium ionised increased [Unknown]
  - Alanine aminotransferase increased [Fatal]
  - International normalised ratio increased [Fatal]
  - Hypotension [Fatal]
  - Blood creatinine increased [Fatal]
  - Bradycardia [Fatal]
  - Pneumonia [Fatal]
  - Blood pH decreased [Fatal]
